FAERS Safety Report 6701873-X (Version None)
Quarter: 2010Q2

REPORT INFORMATION
  Report Type: 
  Country: None (occurrence: None)
  Receive Date: 20100429
  Receipt Date: 20100422
  Transmission Date: 20101027
  Serious: Yes (Hospitalization, Other)
  Sender: FDA-Public Use
  Company Number: US-RB-002302-10

PATIENT
  Sex: Male

DRUGS (1)
  1. SUBOXONE [Suspect]
     Dosage: 8 MG TAKEN 3 TO 4 TIMES DAILY
     Route: 060
     Dates: start: 20070101

REACTIONS (2)
  - BACK PAIN [None]
  - SKIN CANCER [None]
